FAERS Safety Report 6268070-6 (Version None)
Quarter: 2009Q3

REPORT INFORMATION
  Report Type: 
  Country: None (occurrence: None)
  Receive Date: 20090713
  Receipt Date: 20090707
  Transmission Date: 20100115
  Serious: Yes (Other)
  Sender: FDA-Public Use
  Company Number: 2009SP005473

PATIENT
  Age: 66 Year
  Sex: Male

DRUGS (3)
  1. DESLORATADINE [Suspect]
     Indication: HYPERSENSITIVITY
     Dosage: 5 MG; QD;
     Dates: start: 20090126
  2. LESCOL [Concomitant]
  3. PERMIXON [Concomitant]

REACTIONS (1)
  - GLOSSODYNIA [None]
